FAERS Safety Report 6908510-X (Version None)
Quarter: 2010Q3

REPORT INFORMATION
  Report Type: 
  Country: None (occurrence: None)
  Receive Date: 20100805
  Receipt Date: 20100728
  Transmission Date: 20110219
  Serious: Yes (Other)
  Sender: FDA-Public Use
  Company Number: US-JNJFOC-20100508464

PATIENT
  Sex: Male
  Weight: 74.39 kg

DRUGS (2)
  1. TYLENOL (CAPLET) [Suspect]
     Route: 048
  2. TYLENOL (CAPLET) [Suspect]
     Indication: PRODUCT USED FOR UNKNOWN INDICATION
     Route: 048

REACTIONS (10)
  - ABDOMINAL PAIN UPPER [None]
  - CHEST PAIN [None]
  - CLUMSINESS [None]
  - DIARRHOEA [None]
  - HEADACHE [None]
  - HOT FLUSH [None]
  - NAUSEA [None]
  - PRODUCT QUALITY ISSUE [None]
  - VISION BLURRED [None]
  - VOMITING [None]
